FAERS Safety Report 9114892 (Version 1)
Quarter: 2013Q1

REPORT INFORMATION
  Report Type: Spontaneous
  Country: US (occurrence: None)
  Receive Date: 20130220
  Receipt Date: 20130220
  Transmission Date: 20140127
  Serious: Yes (Other)
  Sender: FDA-Public Use
  Company Number: None

PATIENT
  Age: 33 Year
  Sex: Male
  Weight: 84.37 kg

DRUGS (1)
  1. ESCITALOPRAM [Suspect]
     Indication: DEPRESSION
     Route: 048
     Dates: start: 20121001, end: 20121010

REACTIONS (11)
  - Depression [None]
  - Anxiety [None]
  - Nausea [None]
  - Vomiting [None]
  - Decreased appetite [None]
  - Weight decreased [None]
  - Suicidal ideation [None]
  - Quality of life decreased [None]
  - Panic attack [None]
  - Product substitution issue [None]
  - Performance status decreased [None]
